FAERS Safety Report 14964822 (Version 1)
Quarter: 2018Q2

REPORT INFORMATION
  Report Type: Spontaneous
  Country: US (occurrence: US)
  Receive Date: 20180601
  Receipt Date: 20180601
  Transmission Date: 20180711
  Serious: Yes (Other)
  Sender: FDA-Public Use
  Company Number: US-TEVA-2018-US-897942

PATIENT
  Age: 9 Year
  Sex: Female

DRUGS (1)
  1. BUDESONIDE. [Suspect]
     Active Substance: BUDESONIDE
     Indication: EOSINOPHILIC OESOPHAGITIS
     Dates: start: 20180518

REACTIONS (9)
  - Hypersensitivity [Unknown]
  - Abdominal pain [Unknown]
  - Sneezing [Unknown]
  - Pain [Unknown]
  - Incorrect route of drug administration [Unknown]
  - Urticaria [Unknown]
  - Off label use [Unknown]
  - Drug prescribing error [Unknown]
  - Cough [Unknown]

NARRATIVE: CASE EVENT DATE: 20180518
